FAERS Safety Report 8896342 (Version 1)
Quarter: 2012Q4

REPORT INFORMATION
  Report Type: Spontaneous
  Country: US (occurrence: None)
  Receive Date: 20121031
  Receipt Date: 20121031
  Transmission Date: 20130627
  Serious: Yes (Other)
  Sender: FDA-Public Use
  Company Number: FK201203154

PATIENT
  Age: 65 Year
  Sex: Female

DRUGS (2)
  1. LEVOTHYROXINE SODIUM [Suspect]
     Indication: HYPOTHYROIDISM
  2. ORLISTAT [Suspect]
     Indication: WEIGHT DECREASED

REACTIONS (6)
  - Syncope [None]
  - Sinus bradycardia [None]
  - Atrioventricular block first degree [None]
  - Drug interaction [None]
  - Blood thyroid stimulating hormone increased [None]
  - Thyroxine free decreased [None]
